FAERS Safety Report 19162864 (Version 1)
Quarter: 2021Q2

REPORT INFORMATION
  Report Type: Spontaneous
  Country: US (occurrence: US)
  Receive Date: 20210420
  Receipt Date: 20210420
  Transmission Date: 20210717
  Serious: Yes (Hospitalization)
  Sender: FDA-Public Use
  Company Number: None

PATIENT
  Age: 34 Year
  Sex: Female
  Weight: 78 kg

DRUGS (3)
  1. METHOTREXATE. [Suspect]
     Active Substance: METHOTREXATE
     Dates: end: 20210406
  2. MERCAPTOPURINE. [Suspect]
     Active Substance: MERCAPTOPURINE
     Dates: end: 20210411
  3. VINCRISTINE SULFATE. [Suspect]
     Active Substance: VINCRISTINE SULFATE
     Dates: end: 20210209

REACTIONS (7)
  - Confusional state [None]
  - Encephalitis viral [None]
  - Aphasia [None]
  - Gait disturbance [None]
  - Demyelination [None]
  - Asthenia [None]
  - White matter lesion [None]

NARRATIVE: CASE EVENT DATE: 20210412
